FAERS Safety Report 23974142 (Version 2)
Quarter: 2024Q2

REPORT INFORMATION
  Report Type: Report from Study
  Country: FR (occurrence: FR)
  Receive Date: 20240614
  Receipt Date: 20240618
  Transmission Date: 20240715
  Serious: Yes (Other)
  Sender: FDA-Public Use
  Company Number: FR-ABBVIE-5765997

PATIENT
  Age: 78 Year
  Sex: Female

DRUGS (4)
  1. CARBIDOPA\LEVODOPA [Suspect]
     Active Substance: CARBIDOPA\LEVODOPA
     Indication: Parkinson^s disease
     Route: 050
     Dates: start: 20230721, end: 20240515
  2. CARBIDOPA\LEVODOPA [Suspect]
     Active Substance: CARBIDOPA\LEVODOPA
     Dosage: MAINTENANCE FLOW 3.5 ML/H?LAT ADMINISTRATION DATE- MAY 2024
     Route: 050
     Dates: start: 20240515
  3. CARBIDOPA\LEVODOPA [Suspect]
     Active Substance: CARBIDOPA\LEVODOPA
     Dosage: CONTINUOUS FLOW RATE 3.4 ML/H?FIRST ADMIN DATE: MAY 2024
     Route: 050
     Dates: end: 20240606
  4. CARBIDOPA\LEVODOPA [Suspect]
     Active Substance: CARBIDOPA\LEVODOPA
     Dosage: CONTINUOUS FLOW RATE 3.5 ML/H
     Route: 050
     Dates: start: 20240606

REACTIONS (19)
  - Psychotic disorder [Not Recovered/Not Resolved]
  - Syncope [Unknown]
  - Dyskinesia [Not Recovered/Not Resolved]
  - Nervousness [Not Recovered/Not Resolved]
  - Orthostatic hypotension [Unknown]
  - Hand fracture [Not Recovered/Not Resolved]
  - Amnesia [Not Recovered/Not Resolved]
  - Unevaluable event [Not Recovered/Not Resolved]
  - Abnormal behaviour [Not Recovered/Not Resolved]
  - Cognitive disorder [Not Recovered/Not Resolved]
  - Fall [Not Recovered/Not Resolved]
  - Unevaluable event [Unknown]
  - Freezing phenomenon [Not Recovered/Not Resolved]
  - Thinking abnormal [Not Recovered/Not Resolved]
  - Joint dislocation [Unknown]
  - Psychiatric symptom [Unknown]
  - Anal incontinence [Unknown]
  - Judgement impaired [Unknown]
  - Fracture displacement [Not Recovered/Not Resolved]

NARRATIVE: CASE EVENT DATE: 20240101
